FAERS Safety Report 4381466-2 (Version None)
Quarter: 2004Q2

REPORT INFORMATION
  Report Type: 
  Country: None (occurrence: None)
  Receive Date: 20040621
  Receipt Date: 20040614
  Transmission Date: 20050107
  Serious: Yes (Other)
  Sender: FDA-Public Use
  Company Number: FR-BRISTOL-MYERS SQUIBB COMPANY-12616082

PATIENT
  Sex: Male

DRUGS (1)
  1. ELISOR TABS 20 MG [Suspect]
     Route: 048

REACTIONS (1)
  - PROSTATE CANCER [None]
